FAERS Safety Report 6786169-2 (Version None)
Quarter: 2010Q2

REPORT INFORMATION
  Report Type: 
  Country: None (occurrence: None)
  Receive Date: 20100622
  Receipt Date: 20100622
  Transmission Date: 20101027
  Serious: Yes (Other)
  Sender: FDA-Public Use
  Company Number: None

PATIENT
  Sex: Male

DRUGS (2)
  1. PRISTIQ [Suspect]
     Dosage: 1 TAB QDAY PO
     Route: 048
     Dates: start: 20100424, end: 20100621
  2. PRISTIQ [Suspect]
     Dosage: 1 TAB QDAY PO
     Route: 048
     Dates: start: 20100526, end: 20100526

REACTIONS (2)
  - MUSCLE SPASMS [None]
  - MUSCULOSKELETAL STIFFNESS [None]
